FAERS Safety Report 24742395 (Version 3)
Quarter: 2025Q3

REPORT INFORMATION
  Report Type: Spontaneous
  Country: BR (occurrence: BR)
  Receive Date: 20241217
  Receipt Date: 20250809
  Transmission Date: 20251020
  Serious: Yes (Other)
  Sender: ALEXION PHARMACEUTICALS
  Company Number: BR-AstraZeneca-CH-00764034A

PATIENT
  Sex: Male

DRUGS (2)
  1. DAPAGLIFLOZIN [Suspect]
     Active Substance: DAPAGLIFLOZIN
     Indication: Type 2 diabetes mellitus
     Dosage: 10 MILLIGRAM, QD, A TABLET DAILY
     Route: 065
     Dates: start: 20241024
  2. DAPAGLIFLOZIN [Suspect]
     Active Substance: DAPAGLIFLOZIN
     Dosage: 10 MILLIGRAM, QD, 2 TABLETS DAILY
     Route: 065
     Dates: start: 20241208, end: 20241208

REACTIONS (5)
  - Hyperglycaemia [Recovered/Resolved]
  - Hypoglycaemia [Unknown]
  - Drug ineffective [Recovered/Resolved]
  - Extra dose administered [Unknown]
  - Product packaging counterfeit [Unknown]

NARRATIVE: CASE EVENT DATE: 20240101
